FAERS Safety Report 5414909-3 (Version None)
Quarter: 2007Q3

REPORT INFORMATION
  Report Type: 
  Country: None (occurrence: None)
  Receive Date: 20070813
  Receipt Date: 20070813
  Transmission Date: 20080115
  Serious: Yes (Death)
  Sender: FDA-Public Use
  Company Number: None

PATIENT
  Age: 62 Year
  Sex: Male
  Weight: 63.05 kg

DRUGS (7)
  1. ABILIFY [Suspect]
     Indication: BIPOLAR DISORDER
     Dosage: 100MG QDAY
     Dates: start: 20070611, end: 20070630
  2. GEODON [Concomitant]
  3. PROZAC [Concomitant]
  4. FENTANYL TRANSDERMAL SYSTEM [Concomitant]
  5. AGGRENOX [Concomitant]
  6. PERC. [Concomitant]
  7. SKELANTIN [Concomitant]

REACTIONS (11)
  - AGGRESSION [None]
  - ASTHENIA [None]
  - BLOOD SODIUM INCREASED [None]
  - CEREBROVASCULAR ACCIDENT [None]
  - ILEUS [None]
  - PAIN [None]
  - PSYCHOTIC DISORDER [None]
  - THERAPEUTIC AGENT TOXICITY [None]
  - THIRST [None]
  - TREMOR [None]
  - UNRESPONSIVE TO STIMULI [None]
